FAERS Safety Report 10013992 (Version 2)
Quarter: 2014Q2

REPORT INFORMATION
  Report Type: Spontaneous
  Country: KR (occurrence: KR)
  Receive Date: 20140317
  Receipt Date: 20140530
  Transmission Date: 20141212
  Serious: Yes (Other)
  Sender: FDA-Public Use
  Company Number: KR-JNJFOC-20140302326

PATIENT
  Sex: Male

DRUGS (3)
  1. ZYTIGA [Suspect]
     Indication: PROSTATE CANCER
     Dosage: FOR OVER 3 MONTHS
     Route: 048
  2. PREDNISOLONE [Concomitant]
     Route: 048
  3. LHRH AGONIST [Concomitant]
     Route: 065

REACTIONS (3)
  - Blood glucose increased [Unknown]
  - Inappropriate schedule of drug administration [Unknown]
  - Off label use [Unknown]
